FAERS Safety Report 17159489 (Version 4)
Quarter: 2022Q3

REPORT INFORMATION
  Report Type: Report from Study
  Country: CA (occurrence: CA)
  Receive Date: 20191216
  Receipt Date: 20220704
  Transmission Date: 20221027
  Serious: Yes (Other)
  Sender: FDA-Public Use
  Company Number: CA-GLAXOSMITHKLINE-CA2019AMR203694

PATIENT

DRUGS (6)
  1. MEPOLIZUMAB [Suspect]
     Active Substance: MEPOLIZUMAB
     Indication: Asthma
     Dosage: 100 MG, Z (MONTHLY)
     Dates: start: 20180517
  2. ADVAIR HFA [Suspect]
     Active Substance: FLUTICASONE PROPIONATE\SALMETEROL XINAFOATE
     Indication: Product used for unknown indication
     Dosage: 1 PUFF(S), BID, (25/250UG)
  3. VENTOLIN [Suspect]
     Active Substance: ALBUTEROL SULFATE
     Indication: Product used for unknown indication
     Dosage: 100 UG,AS NEEDED
  4. MONTELUKAST [Suspect]
     Active Substance: MONTELUKAST SODIUM
     Indication: Product used for unknown indication
     Dosage: 10 MG, QD
  5. SPIRIVA [Suspect]
     Active Substance: TIOTROPIUM BROMIDE MONOHYDRATE
     Indication: Product used for unknown indication
     Dosage: 2 PUFF(S), QD,25MG
  6. XOLAIR [Suspect]
     Active Substance: OMALIZUMAB
     Indication: Asthma
     Dosage: UNK
     Dates: start: 201703, end: 201804

REACTIONS (6)
  - Asthma [Recovering/Resolving]
  - Loss of personal independence in daily activities [Recovered/Resolved]
  - Dyspnoea [Recovered/Resolved]
  - Sleep disorder due to a general medical condition [Recovered/Resolved]
  - Wheezing [Recovering/Resolving]
  - Therapeutic product effect incomplete [Unknown]
